FAERS Safety Report 13152295 (Version 1)
Quarter: 2017Q1

REPORT INFORMATION
  Report Type: Spontaneous
  Country: US (occurrence: US)
  Receive Date: 20170125
  Receipt Date: 20170125
  Transmission Date: 20170428
  Serious: No
  Sender: FDA-Public Use
  Company Number: US-ALLERGAN-1648511

PATIENT
  Sex: Female
  Weight: 98.88 kg

DRUGS (5)
  1. NO SUSPECT ALLERGAN PRODUCT [Suspect]
     Active Substance: UNSPECIFIED INGREDIENT
     Dosage: 10 MG, UNKNOWN
     Route: 048
  2. XANAX [Concomitant]
     Active Substance: ALPRAZOLAM
     Indication: MULTIPLE SCLEROSIS
     Dosage: 1 MG, BID
     Route: 065
  3. XANAX [Concomitant]
     Active Substance: ALPRAZOLAM
     Indication: ANXIETY
     Dosage: 0.5 MG, TID
     Route: 048
  4. XANAX [Concomitant]
     Active Substance: ALPRAZOLAM
     Indication: SPINAL DISORDER
  5. XANAX [Concomitant]
     Active Substance: ALPRAZOLAM
     Indication: VESTIBULAR DISORDER
     Dosage: 0.5 MG, QD
     Route: 065

REACTIONS (1)
  - No adverse event [Unknown]
